FAERS Safety Report 7421783-2 (Version None)
Quarter: 2011Q2

REPORT INFORMATION
  Report Type: 
  Country: None (occurrence: None)
  Receive Date: 20110418
  Receipt Date: 20110406
  Transmission Date: 20111010
  Serious: Yes (Death, Hospitalization)
  Sender: FDA-Public Use
  Company Number: US-CELGENEUS-163-21880-11040760

PATIENT
  Sex: Female

DRUGS (7)
  1. LORAZEPAM [Concomitant]
     Route: 065
  2. PLATELETS [Concomitant]
  3. REVLIMID [Suspect]
     Dosage: 10 MILLIGRAM
     Route: 048
     Dates: start: 20110101, end: 20110301
  4. HYDROCODONE BITARTRATE AND ACETAMINOPHEN [Concomitant]
     Route: 065
  5. DRONABINOL [Concomitant]
     Route: 065
  6. PROCHLORPERAZINE TAB [Concomitant]
     Route: 065
  7. OMEPRAZOLE [Concomitant]
     Route: 065

REACTIONS (5)
  - SEPSIS [None]
  - DEATH [None]
  - CELLULITIS [None]
  - PANCYTOPENIA [None]
  - HYPOXIA [None]
